FAERS Safety Report 16109028 (Version 1)
Quarter: 2019Q1

REPORT INFORMATION
  Report Type: Spontaneous
  Country: US (occurrence: US)
  Receive Date: 20190323
  Receipt Date: 20190323
  Transmission Date: 20190418
  Serious: No
  Sender: FDA-Public Use
  Company Number: US-THERAPEUTICSMD-2019TMD00051

PATIENT
  Age: 62 Year
  Sex: Female
  Weight: 62.59 kg

DRUGS (9)
  1. IMVEXXY [Suspect]
     Active Substance: ESTRADIOL
     Indication: ATROPHIC VULVOVAGINITIS
  2. ALPRAZOLAM. [Concomitant]
     Active Substance: ALPRAZOLAM
     Dosage: 0.5 MG, 1X/DAY AS NEEDED
     Route: 048
  3. NITROFURANTOIN. [Concomitant]
     Active Substance: NITROFURANTOIN
     Dosage: UNK, AS NEEDED AFTER INTERCOURSE
  4. IMVEXXY [Suspect]
     Active Substance: ESTRADIOL
     Indication: VAGINAL INFECTION
     Dosage: 10 ?G, ONCE
     Route: 067
     Dates: start: 201812, end: 201812
  5. LEVOTHYROXINE. [Concomitant]
     Active Substance: LEVOTHYROXINE
     Route: 048
  6. PANTOPRAZOLE [Concomitant]
     Active Substance: PANTOPRAZOLE
     Route: 048
  7. METRONIDAZOLE VAGINAL [Concomitant]
     Active Substance: METRONIDAZOLE
     Dosage: 1 APPLICATORFUL, AS NEEDED AFTER INTERCOURSE
     Route: 067
  8. ANUCORT-HC [Concomitant]
     Active Substance: HYDROCORTISONE ACETATE
     Dosage: 25 MG, 2X/DAY
     Route: 054
  9. HYDROCHLOROTHIAZIDE. [Concomitant]
     Active Substance: HYDROCHLOROTHIAZIDE
     Dosage: UNK
     Route: 048

REACTIONS (10)
  - Pelvic discomfort [Unknown]
  - Urinary tract infection [Unknown]
  - Pruritus genital [Unknown]
  - Fungal infection [Unknown]
  - Migraine [Unknown]
  - Vulvovaginal discomfort [Unknown]
  - Micturition urgency [Unknown]
  - Back pain [Unknown]
  - Vaginal discharge [Unknown]
  - Vulvovaginal burning sensation [Unknown]

NARRATIVE: CASE EVENT DATE: 201901
